FAERS Safety Report 8216604-4 (Version None)
Quarter: 2012Q1

REPORT INFORMATION
  Report Type: 
  Country: None (occurrence: None)
  Receive Date: 20120316
  Receipt Date: 20120310
  Transmission Date: 20120608
  Serious: Yes (Other)
  Sender: FDA-Public Use
  Company Number: CHPA2012DE004721

PATIENT
  Sex: Male

DRUGS (1)
  1. OTRIVIN [Suspect]
     Dosage: UNK, UNK
     Route: 045

REACTIONS (3)
  - DRUG DEPENDENCE [None]
  - MUCOUS MEMBRANE DISORDER [None]
  - DYSPNOEA [None]
